FAERS Safety Report 6911217-6 (Version None)
Quarter: 2010Q3

REPORT INFORMATION
  Report Type: 
  Country: None (occurrence: None)
  Receive Date: 20100806
  Receipt Date: 20100729
  Transmission Date: 20110219
  Serious: Yes (Hospitalization, Other)
  Sender: FDA-Public Use
  Company Number: US-ABBOTT-10P-163-0641164-01

PATIENT
  Sex: Female
  Weight: 79.3 kg

DRUGS (18)
  1. HUMIRA [Suspect]
     Indication: RHEUMATOID ARTHRITIS
     Route: 058
     Dates: start: 20010314, end: 20100303
  2. GLIPIZIDE [Concomitant]
     Indication: DIABETES MELLITUS
     Route: 048
     Dates: start: 19981029, end: 20060517
  3. GLUCOPHAGE [Concomitant]
     Indication: DIABETES MELLITUS
     Route: 048
     Dates: start: 20011213, end: 20070315
  4. GLUCOPHAGE [Concomitant]
     Route: 048
     Dates: start: 20070315
  5. ACCUPRIL [Concomitant]
     Indication: HYPERTENSION
     Route: 048
     Dates: start: 20021010
  6. CALCIUM [Concomitant]
     Indication: OSTEOPOROSIS
     Route: 048
     Dates: start: 19980915
  7. FOLIC ACID [Concomitant]
     Indication: VITAMIN SUPPLEMENTATION
     Route: 048
     Dates: start: 19980915
  8. METHOTREXATE [Concomitant]
     Indication: RHEUMATOID ARTHRITIS
     Route: 048
     Dates: start: 20010202, end: 20010516
  9. METHOTREXATE [Concomitant]
     Route: 048
     Dates: start: 20010517, end: 20010725
  10. METHOTREXATE [Concomitant]
     Route: 048
     Dates: start: 20010926, end: 20020130
  11. METHOTREXATE [Concomitant]
     Route: 048
     Dates: start: 20020131
  12. CELEBREX [Concomitant]
     Indication: RHEUMATOID ARTHRITIS
     Route: 048
     Dates: start: 20050113
  13. LORTAB [Concomitant]
     Indication: RHEUMATOID ARTHRITIS
     Dosage: 10/500MG
     Route: 048
     Dates: start: 20030314
  14. ACETAMINOPHEN AND HYDROCODONE BITARTRATE [Concomitant]
     Indication: RHEUMATOID ARTHRITIS
     Dosage: 7.5/500MG
     Route: 048
     Dates: start: 20001111, end: 20030313
  15. VITAMIN D [Concomitant]
     Indication: VITAMIN SUPPLEMENTATION
     Dates: start: 20091203
  16. MULTI-VITAMIN [Concomitant]
     Indication: VITAMIN SUPPLEMENTATION
     Dates: start: 20090514
  17. PERCOCET [Concomitant]
     Dosage: 5/325 MG
  18. FEMARA [Concomitant]
     Indication: BREAST CANCER
     Route: 048
     Dates: start: 20100401

REACTIONS (5)
  - ABSCESS RUPTURE [None]
  - BRONCHOPLEURAL FISTULA [None]
  - HYDROPNEUMOTHORAX [None]
  - LUNG ABSCESS [None]
  - PNEUMONIA [None]
